FAERS Safety Report 9216354 (Version 3)
Quarter: 2013Q2

REPORT INFORMATION
  Report Type: Spontaneous
  Country: US (occurrence: None)
  Receive Date: 20130402
  Receipt Date: 20130513
  Transmission Date: 20140414
  Serious: Yes (Other)
  Sender: FDA-Public Use
  Company Number: ACO_34955_2013

PATIENT
  Age: 53 Year
  Sex: Female

DRUGS (1)
  1. AMPYRA [Suspect]
     Indication: PRODUCT USED FOR UNKNOWN INDICATION
     Dates: start: 20100315, end: 201303

REACTIONS (10)
  - Epistaxis [None]
  - Hypersensitivity [None]
  - Sinusitis [None]
  - Road traffic accident [None]
  - Visual impairment [None]
  - Adverse drug reaction [None]
  - Movement disorder [None]
  - Spondylitis [None]
  - Multiple allergies [None]
  - Hypersomnia [None]
